FAERS Safety Report 10339434 (Version 1)
Quarter: 2014Q3

REPORT INFORMATION
  Report Type: Spontaneous
  Country: US (occurrence: US)
  Receive Date: 20140724
  Receipt Date: 20140724
  Transmission Date: 20150326
  Serious: No
  Sender: FDA-Public Use
  Company Number: US-BAYER-2014-109926

PATIENT
  Age: 59 Year
  Sex: Female
  Weight: 109 kg

DRUGS (1)
  1. ALEVE [Suspect]
     Active Substance: NAPROXEN SODIUM
     Indication: PAIN IN EXTREMITY
     Dosage: 4 DF IN A DAY
     Route: 048
     Dates: start: 201407, end: 201407

REACTIONS (2)
  - Expired product administered [None]
  - Extra dose administered [None]

NARRATIVE: CASE EVENT DATE: 201407
